FAERS Safety Report 7223368-X (Version None)
Quarter: 2011Q1

REPORT INFORMATION
  Report Type: 
  Country: None (occurrence: None)
  Receive Date: 20110112
  Receipt Date: 20100514
  Transmission Date: 20110831
  Serious: No
  Sender: FDA-Public Use
  Company Number: US-ALLERGAN-1006371US

PATIENT
  Sex: Female

DRUGS (4)
  1. REFRESH LIQUIGEL OPHTHALMIC [Concomitant]
  2. RESTASIS [Suspect]
     Indication: DRY EYE
     Dosage: UNK
     Route: 047
  3. REFRESH P.M. [Concomitant]
  4. MULTI-VITAMIN [Concomitant]

REACTIONS (1)
  - EYE IRRITATION [None]
